FAERS Safety Report 22163711 (Version 1)
Quarter: 2023Q2

REPORT INFORMATION
  Report Type: Spontaneous
  Country: US (occurrence: US)
  Receive Date: 20230401
  Receipt Date: 20230401
  Transmission Date: 20230722
  Serious: No
  Sender: FDA-Public Use
  Company Number: US-THEA-2022001852

PATIENT
  Sex: Female

DRUGS (1)
  1. COSOPT PF [Suspect]
     Active Substance: DORZOLAMIDE HYDROCHLORIDE\TIMOLOL MALEATE
     Indication: Ocular discomfort
     Dosage: BOTH EYES
     Route: 047
     Dates: start: 202112

REACTIONS (4)
  - Eye irritation [Unknown]
  - Dry skin [Unknown]
  - Periorbital pain [Unknown]
  - Skin exfoliation [Unknown]
